FAERS Safety Report 6151898-0 (Version None)
Quarter: 2009Q2

REPORT INFORMATION
  Report Type: 
  Country: None (occurrence: None)
  Receive Date: 20090408
  Receipt Date: 20090327
  Transmission Date: 20091009
  Serious: Yes (Other)
  Sender: FDA-Public Use
  Company Number: 2008EU000754

PATIENT
  Age: 67 Year
  Sex: Female

DRUGS (2)
  1. PROGRAF [Suspect]
     Indication: RENAL TRANSPLANT
     Dosage: D
  2. CELLCEPT [Concomitant]

REACTIONS (3)
  - CALCINOSIS [None]
  - RENAL TUBULAR DISORDER [None]
  - THERAPEUTIC AGENT TOXICITY [None]
